FAERS Safety Report 20431957 (Version 3)
Quarter: 2022Q2

REPORT INFORMATION
  Report Type: Spontaneous
  Country: JP (occurrence: JP)
  Receive Date: 20220204
  Receipt Date: 20220406
  Transmission Date: 20220721
  Serious: Yes (Death, Hospitalization, Other)
  Sender: FDA-Public Use
  Company Number: JP-BAYER-2022A014886

PATIENT
  Age: 73 Year
  Sex: Male
  Weight: 64.6 kg

DRUGS (8)
  1. VERICIGUAT HYDROCHLORIDE [Suspect]
     Active Substance: VERICIGUAT HYDROCHLORIDE
     Indication: Congestive cardiomyopathy
     Dosage: 10 MG, QD
     Route: 048
     Dates: start: 20211125, end: 20220123
  2. VERICIGUAT HYDROCHLORIDE [Suspect]
     Active Substance: VERICIGUAT HYDROCHLORIDE
     Indication: Cardiac failure chronic
  3. CARVEDILOL [Concomitant]
     Active Substance: CARVEDILOL
     Indication: Cardiac failure
     Dosage: DAILY DOSE: 20 MG
     Route: 048
     Dates: start: 20210916, end: 20211014
  4. CARVEDILOL [Concomitant]
     Active Substance: CARVEDILOL
     Dosage: 10 MG, QD
     Route: 048
     Dates: start: 20211015, end: 20220123
  5. FUROSEMIDE [Concomitant]
     Active Substance: FUROSEMIDE
     Indication: Cardiac failure
     Dosage: 20 MG, QD
     Route: 048
     Dates: start: 20210916, end: 20211014
  6. ENALAPRIL MALEATE [Concomitant]
     Active Substance: ENALAPRIL MALEATE
     Indication: Cardiac failure
     Dosage: 2.5 MG, QD
     Route: 048
     Dates: start: 20210916, end: 20211014
  7. AZOSEMIDE [Concomitant]
     Active Substance: AZOSEMIDE
     Indication: Cardiac failure
     Dosage: 60 MG, QD
     Route: 048
     Dates: start: 20211211, end: 20220123
  8. SAMSCA [Concomitant]
     Active Substance: TOLVAPTAN
     Indication: Cardiac failure
     Dosage: DAILY DOSE: 3.75 MG
     Route: 048
     Dates: start: 20211211, end: 20220123

REACTIONS (4)
  - Rectal cancer recurrent [Fatal]
  - Deep vein thrombosis [Recovering/Resolving]
  - Decreased appetite [Fatal]
  - Mobility decreased [Fatal]

NARRATIVE: CASE EVENT DATE: 20211125
